FAERS Safety Report 15179403 (Version 2)
Quarter: 2018Q3

REPORT INFORMATION
  Report Type: Report from Study
  Country: US (occurrence: US)
  Receive Date: 20180723
  Receipt Date: 20180802
  Transmission Date: 20181010
  Serious: Yes (Hospitalization)
  Sender: FDA-Public Use
  Company Number: US-ROCHE-2125594

PATIENT
  Age: 54 Year
  Sex: Male
  Weight: 85.7 kg

DRUGS (29)
  1. XL184 [Suspect]
     Active Substance: CABOZANTINIB
     Dosage: MOST RECENT DOSE OF CABOZANTINIB PRIOR TO THE ONSET OF PLEURAL EFFUSION : 04/JUL/2018.
     Route: 048
     Dates: start: 20180517
  2. PAROXETINE. [Concomitant]
     Active Substance: PAROXETINE
  3. PRILOSEC [Concomitant]
     Active Substance: OMEPRAZOLE MAGNESIUM
  4. MORPHINE [Concomitant]
     Active Substance: MORPHINE
  5. ULTRAM [Concomitant]
     Active Substance: TRAMADOL HYDROCHLORIDE
  6. DENOSUMAB [Concomitant]
     Active Substance: DENOSUMAB
     Route: 065
     Dates: start: 20180614
  7. LEUPRORELIN [Concomitant]
     Active Substance: LEUPROLIDE ACETATE
  8. TADALAFIL [Concomitant]
     Active Substance: TADALAFIL
  9. TRAMADOL. [Concomitant]
     Active Substance: TRAMADOL
  10. CARAFATE [Concomitant]
     Active Substance: SUCRALFATE
  11. CIALIS [Concomitant]
     Active Substance: TADALAFIL
  12. AUGMENTIN [Concomitant]
     Active Substance: AMOXICILLIN\CLAVULANATE POTASSIUM
  13. RIZATRIPTAN. [Concomitant]
     Active Substance: RIZATRIPTAN
  14. BIFIDOBACTERIUM LACTIS [Concomitant]
     Active Substance: BIFIDOBACTERIUM ANIMALIS LACTIS
  15. XANAX [Concomitant]
     Active Substance: ALPRAZOLAM
  16. MIGRELIEF (UNK INGREDIENTS) [Concomitant]
  17. NAPROSYN [Concomitant]
     Active Substance: NAPROXEN
  18. ATEZOLIZUMAB. [Suspect]
     Active Substance: ATEZOLIZUMAB
     Indication: HORMONE-REFRACTORY PROSTATE CANCER
     Dosage: MOST RECENT DOSE PRIOR TO CHEST PAIN AND DYSPNEA: 24/APR/2018?MOST RECENT DOSE OF ATEZOLIZUMAB PRIOR
     Route: 042
     Dates: start: 20180424
  19. XL184 [Suspect]
     Active Substance: CABOZANTINIB
     Indication: HORMONE-REFRACTORY PROSTATE CANCER
     Dosage: MOST RECENT DOSE PRIOR TO THE ONSET OF CHEST PAIN AND DYSPNEA: 24/MAY/2018?MOST RECENT DOSE OF CABOZ
     Route: 048
     Dates: start: 20180424, end: 20180505
  20. ALPRAZOLAM. [Concomitant]
     Active Substance: ALPRAZOLAM
  21. PAXIL [Concomitant]
     Active Substance: PAROXETINE HYDROCHLORIDE
  22. MAXALT?MLT [Concomitant]
     Active Substance: RIZATRIPTAN BENZOATE
  23. XGEVA [Concomitant]
     Active Substance: DENOSUMAB
  24. AZITHROMYCIN ANHYDROUS. [Concomitant]
     Active Substance: AZITHROMYCIN ANHYDROUS
  25. NAPROXEN. [Concomitant]
     Active Substance: NAPROXEN
  26. TESSALON [Concomitant]
     Active Substance: BENZONATATE
  27. ESOMEPRAZOLE [Concomitant]
     Active Substance: ESOMEPRAZOLE
  28. RIBOFLAVIN [Concomitant]
     Active Substance: RIBOFLAVIN
  29. LUPRON [Concomitant]
     Active Substance: LEUPROLIDE ACETATE

REACTIONS (3)
  - Dyspnoea [Recovered/Resolved]
  - Infection [Recovered/Resolved]
  - Chest pain [Recovering/Resolving]

NARRATIVE: CASE EVENT DATE: 20180505
